FAERS Safety Report 7610819-1 (Version None)
Quarter: 2011Q3

REPORT INFORMATION
  Report Type: 
  Country: None (occurrence: None)
  Receive Date: 20110715
  Receipt Date: 20110708
  Transmission Date: 20111222
  Serious: Yes (Other)
  Sender: FDA-Public Use
  Company Number: GB-ABBOTT-11P-167-0838029-00

PATIENT
  Sex: Female

DRUGS (1)
  1. HUMIRA [Suspect]
     Indication: RHEUMATOID ARTHRITIS
     Route: 058
     Dates: start: 20091201, end: 20110708

REACTIONS (3)
  - ORAL MUCOSAL DISCOLOURATION [None]
  - LIP AND/OR ORAL CAVITY CANCER [None]
  - EMOTIONAL DISTRESS [None]
